FAERS Safety Report 14725750 (Version 1)
Quarter: 2018Q2

REPORT INFORMATION
  Report Type: Report from Study
  Country: None (occurrence: US)
  Receive Date: 20180406
  Receipt Date: 20180406
  Transmission Date: 20180711
  Serious: Yes (Other)
  Sender: FDA-Public Use
  Company Number: US-ABBVIE-17K-163-2045999-00

PATIENT
  Sex: Female

DRUGS (2)
  1. HUMIRA [Suspect]
     Active Substance: ADALIMUMAB
     Route: 058
     Dates: start: 20180209
  2. HUMIRA [Suspect]
     Active Substance: ADALIMUMAB
     Indication: ANKYLOSING SPONDYLITIS
     Route: 058
     Dates: start: 20170713, end: 201712

REACTIONS (19)
  - Fatigue [Unknown]
  - Sluggishness [Unknown]
  - Back pain [Recovering/Resolving]
  - Oropharyngeal pain [Unknown]
  - Joint range of motion decreased [Not Recovered/Not Resolved]
  - Tenderness [Unknown]
  - Sinus disorder [Unknown]
  - Nasal congestion [Unknown]
  - Arthralgia [Not Recovered/Not Resolved]
  - Arthralgia [Recovering/Resolving]
  - Brain neoplasm [Recovered/Resolved]
  - Discomfort [Not Recovered/Not Resolved]
  - Musculoskeletal pain [Not Recovered/Not Resolved]
  - Rhinorrhoea [Unknown]
  - Dysstasia [Unknown]
  - Joint swelling [Unknown]
  - Musculoskeletal stiffness [Recovering/Resolving]
  - Neck pain [Not Recovered/Not Resolved]
  - Headache [Unknown]

NARRATIVE: CASE EVENT DATE: 2017
